FAERS Safety Report 4376675-2 (Version None)
Quarter: 2004Q2

REPORT INFORMATION
  Report Type: 
  Country: None (occurrence: None)
  Receive Date: 20040608
  Receipt Date: 20040527
  Transmission Date: 20050107
  Serious: Yes (Hospitalization)
  Sender: FDA-Public Use
  Company Number: 04P-163-0262293-00

PATIENT
  Age: 68 Year
  Sex: Female
  Weight: 97.0698 kg

DRUGS (17)
  1. HUMIRA 40/0.8 ML PRE-FILLED SYRINGE (HUMIRA) (ADALIMUMAB) [Suspect]
     Indication: RHEUMATOID ARTHRITIS
     Dosage: 40 MG, 1 IN 2 WK, SUBCUTANEOUS
     Route: 058
     Dates: start: 20030901, end: 20040310
  2. CELECOXIB [Concomitant]
  3. ESOMEPRAZOLE [Concomitant]
  4. PRECDNISONE HYDROCHLOROTHIAZIDE [Concomitant]
  5. FOLIC ACID [Concomitant]
  6. ATORVASTATIN CALCIUM [Concomitant]
  7. WARFARIN SODIUM [Concomitant]
  8. METHOTREXATE [Concomitant]
  9. PROPACET 100 [Concomitant]
  10. ASCORBIC ACID [Concomitant]
  11. TOCOPHEROL CONCENTRATE CAP [Concomitant]
  12. IRON [Concomitant]
  13. ASPIRIN [Concomitant]
  14. PRENATAL VITAMINS [Concomitant]
  15. ESTRADIOL [Concomitant]
  16. AMLODIPINE BESYLATE [Concomitant]
  17. CANDESARTAN CILEXETIL [Concomitant]

REACTIONS (1)
  - MITRAL VALVE PROLAPSE [None]
